FAERS Safety Report 9695640 (Version 3)
Quarter: 2014Q1

REPORT INFORMATION
  Report Type: Spontaneous
  Country: GB (occurrence: GB)
  Receive Date: 20131119
  Receipt Date: 20140110
  Transmission Date: 20141002
  Serious: Yes (Death, Hospitalization)
  Sender: FDA-Public Use
  Company Number: GB-VERTEX PHARMACEUTICALS INC-2013-011140

PATIENT
  Sex: Male

DRUGS (3)
  1. INCIVO [Suspect]
     Indication: HEPATITIS C
     Dosage: UNK
     Route: 048
     Dates: start: 20121029, end: 20130121
  2. PEGASYS [Suspect]
     Indication: HEPATITIS C
     Dosage: 180 ?G, QW
     Route: 065
     Dates: start: 20121029, end: 20130721
  3. COPEGUS [Suspect]
     Indication: HEPATITIS C
     Dosage: 200 MG, QD
     Route: 065
     Dates: start: 20121029, end: 20130721

REACTIONS (6)
  - Upper respiratory tract infection [Fatal]
  - Renal failure [Fatal]
  - Melaena [Fatal]
  - Nephrotic syndrome [Unknown]
  - Pneumonia [Unknown]
  - Off label use [Unknown]
